FAERS Safety Report 4815172-4 (Version None)
Quarter: 2005Q4

REPORT INFORMATION
  Report Type: 
  Country: None (occurrence: None)
  Receive Date: 20051028
  Receipt Date: 20051003
  Transmission Date: 20060501
  Serious: Yes (Death, Hospitalization)
  Sender: FDA-Public Use
  Company Number: US-MERCK-0510USA02198

PATIENT
  Age: 71 Year
  Sex: Female
  Weight: 91 kg

DRUGS (3)
  1. LEVOTHROID [Concomitant]
     Route: 065
  2. VIOXX [Suspect]
     Indication: OSTEOARTHRITIS
     Route: 048
     Dates: start: 19990621, end: 20011220
  3. VIOXX [Suspect]
     Route: 048
     Dates: start: 19990621, end: 20011220

REACTIONS (5)
  - ANXIETY [None]
  - CEREBROVASCULAR ACCIDENT [None]
  - DEATH [None]
  - INJURY [None]
  - PAIN [None]
